FAERS Safety Report 6253624-3 (Version None)
Quarter: 2009Q3

REPORT INFORMATION
  Report Type: 
  Country: None (occurrence: None)
  Receive Date: 20090701
  Receipt Date: 20090622
  Transmission Date: 20100115
  Serious: Yes (Other)
  Sender: FDA-Public Use
  Company Number: US-PFIZER INC-2009232159

PATIENT
  Sex: Female
  Weight: 63.502 kg

DRUGS (1)
  1. LIPITOR [Suspect]
     Indication: BLOOD CHOLESTEROL INCREASED
     Dosage: 10 MG, 1X/DAY
     Dates: end: 20090501

REACTIONS (4)
  - BACTERIA BLOOD IDENTIFIED [None]
  - MYALGIA [None]
  - MYOGLOBIN URINE PRESENT [None]
  - PHARYNGEAL ERYTHEMA [None]
